FAERS Safety Report 8162448-1 (Version None)
Quarter: 2012Q1

REPORT INFORMATION
  Report Type: 
  Country: None (occurrence: None)
  Receive Date: 20120221
  Receipt Date: 20120210
  Transmission Date: 20120608
  Serious: Yes (Hospitalization, Other)
  Sender: FDA-Public Use
  Company Number: 2011SP056287

PATIENT
  Sex: Male

DRUGS (6)
  1. RIBAVIRIN [Suspect]
     Indication: HEPATITIS C
     Dates: start: 20100401, end: 20100601
  2. RIBAVIRIN [Suspect]
     Indication: HEPATITIS C
     Dates: start: 20111202
  3. RIBAVIRIN [Suspect]
     Indication: HEPATITIS C
     Dates: start: 20111216
  4. PEGASYS [Suspect]
     Indication: HEPATITIS C
     Dates: start: 20100401, end: 20100601
  5. PEGASYS [Suspect]
     Indication: HEPATITIS C
     Dates: start: 20111202
  6. PEGASYS [Suspect]
     Indication: HEPATITIS C
     Dates: start: 20111216

REACTIONS (4)
  - WHITE BLOOD CELL COUNT DECREASED [None]
  - FLUID INTAKE REDUCED [None]
  - LOSS OF CONSCIOUSNESS [None]
  - RED BLOOD CELL COUNT DECREASED [None]
